FAERS Safety Report 13967913 (Version 3)
Quarter: 2018Q1

REPORT INFORMATION
  Report Type: Spontaneous
  Country: US (occurrence: US)
  Receive Date: 20170914
  Receipt Date: 20180101
  Transmission Date: 20180508
  Serious: No
  Sender: FDA-Public Use
  Company Number: US-ASTRAZENECA-2017SE91523

PATIENT
  Age: 23648 Day
  Sex: Male
  Weight: 81.6 kg

DRUGS (1)
  1. BYDUREON [Suspect]
     Active Substance: EXENATIDE
     Indication: TYPE 2 DIABETES MELLITUS
     Route: 058
     Dates: start: 20170819

REACTIONS (5)
  - Injection site pain [Unknown]
  - Drug dispensing error [Unknown]
  - Injection site haemorrhage [Unknown]
  - Circumstance or information capable of leading to medication error [Unknown]
  - Device malfunction [Unknown]

NARRATIVE: CASE EVENT DATE: 20170819
